FAERS Safety Report 5572642-1 (Version None)
Quarter: 2007Q4

REPORT INFORMATION
  Report Type: 
  Country: None (occurrence: None)
  Receive Date: 20071130
  Receipt Date: 20061102
  Transmission Date: 20080405
  Serious: Yes (Other)
  Sender: FDA-Public Use
  Company Number: WAES 0604USA03963

PATIENT
  Age: 75 Year
  Sex: Female

DRUGS (8)
  1. FOSAMAX [Suspect]
     Indication: OSTEOPOROSIS
     Dosage: 70 MG/WKY/PO
     Route: 048
     Dates: start: 20050401, end: 20060406
  2. AVAPRO [Concomitant]
  3. LASIX [Concomitant]
  4. LOPRESSOR [Concomitant]
  5. NORVASC [Concomitant]
  6. PRAVACHOL [Concomitant]
  7. PROVIGIL [Concomitant]
  8. ASPIRIN [Concomitant]

REACTIONS (1)
  - OSTEONECROSIS [None]
